FAERS Safety Report 11135408 (Version 3)
Quarter: 2015Q2

REPORT INFORMATION
  Report Type: Spontaneous
  Country: US (occurrence: None)
  Receive Date: 20150521
  Receipt Date: 20150611
  Transmission Date: 20150821
  Serious: Yes (Other)
  Sender: FDA-Public Use
  Company Number: ADR-2015-00973

PATIENT
  Age: 54 Year
  Sex: Female

DRUGS (6)
  1. FENTANYL INTRATHECAL 10,000 MCG/ML [Suspect]
     Active Substance: FENTANYL
  2. CLONODINE 500 MCG/ML [Suspect]
     Active Substance: CLONIDINE
  3. DILAUDID [Suspect]
     Active Substance: HYDROMORPHONE HYDROCHLORIDE
  4. BUPIVACAINE 25 MG/ML [Suspect]
     Active Substance: BUPIVACAINE
  5. MORPHINE [Suspect]
     Active Substance: MORPHINE
  6. COMPOUNDED BACLOFEN INTRATHECAL 500 MCG/ML [Suspect]
     Active Substance: BACLOFEN
     Indication: PAIN

REACTIONS (6)
  - Drug ineffective [None]
  - Implant site extravasation [None]
  - Medical device site discomfort [None]
  - Pain [None]
  - Implant site pain [None]
  - Implant site haematoma [None]
